APPROVED DRUG PRODUCT: BETAMETHASONE DIPROPIONATE
Active Ingredient: BETAMETHASONE DIPROPIONATE
Strength: EQ 0.05% BASE
Dosage Form/Route: LOTION;TOPICAL
Application: A071085 | Product #001
Applicant: ALPHARMA US PHARMACEUTICALS DIVISION
Approved: Feb 3, 1987 | RLD: No | RS: No | Type: DISCN